FAERS Safety Report 6829759-0 (Version None)
Quarter: 2010Q3

REPORT INFORMATION
  Report Type: 
  Country: None (occurrence: None)
  Receive Date: 20100709
  Receipt Date: 20081204
  Transmission Date: 20110219
  Serious: No
  Sender: FDA-Public Use
  Company Number: US-PFIZER INC-2007008710

PATIENT
  Sex: Male
  Weight: 67.59 kg

DRUGS (5)
  1. CHANTIX [Suspect]
     Indication: SMOKING CESSATION THERAPY
     Dosage: 0.5 MG, 1X/DAY
     Dates: start: 20070123
  2. ZYRTEC [Concomitant]
     Indication: SINUSITIS
  3. ALL OTHER THERAPEUTIC PRODUCTS [Concomitant]
     Indication: MULTIPLE ALLERGIES
  4. ASTELIN [Concomitant]
     Indication: MULTIPLE ALLERGIES
     Dosage: UNK
     Route: 045
  5. ANTIBIOTICS [Concomitant]
     Indication: PNEUMONIA

REACTIONS (4)
  - DRUG INEFFECTIVE [None]
  - DRY MOUTH [None]
  - PAIN OF SKIN [None]
  - RASH [None]
